FAERS Safety Report 25148838 (Version 2)
Quarter: 2025Q3

REPORT INFORMATION
  Report Type: Report from Study
  Country: US (occurrence: US)
  Receive Date: 20250402
  Receipt Date: 20250803
  Transmission Date: 20251021
  Serious: Yes (Other)
  Sender: ALEXION PHARMACEUTICALS
  Company Number: US-AstraZeneca-CH-00837110A

PATIENT
  Sex: Female
  Weight: 53 kg

DRUGS (2)
  1. OSIMERTINIB [Suspect]
     Active Substance: OSIMERTINIB
     Indication: Lung neoplasm malignant
     Dosage: 80 MILLIGRAM, QD
     Dates: start: 20240329
  2. EYLEA [Concomitant]
     Active Substance: AFLIBERCEPT
     Route: 065

REACTIONS (3)
  - Macular degeneration [Unknown]
  - Spinal disorder [Unknown]
  - Rash pruritic [Unknown]
